FAERS Safety Report 19763581 (Version 1)
Quarter: 2021Q3

REPORT INFORMATION
  Report Type: Spontaneous
  Country: SI (occurrence: SI)
  Receive Date: 20210830
  Receipt Date: 20210830
  Transmission Date: 20211014
  Serious: Yes (Death, Hospitalization)
  Sender: FDA-Public Use
  Company Number: SI-AMNEAL PHARMACEUTICALS-2021-AMRX-03551

PATIENT
  Age: 46 Year
  Sex: Female

DRUGS (7)
  1. ESKETAMINE [Concomitant]
     Active Substance: ESKETAMINE
     Indication: ABDOMINAL PAIN
     Dosage: UNK
     Route: 065
     Dates: start: 202008
  2. MORPHINE [Concomitant]
     Active Substance: MORPHINE
     Indication: ANALGESIC THERAPY
     Dosage: UNK
     Route: 065
     Dates: start: 202008
  3. MORPHINE [Concomitant]
     Active Substance: MORPHINE
     Dosage: 80 MILLIGRAM
  4. MORPHINE [Concomitant]
     Active Substance: MORPHINE
     Indication: ABDOMINAL PAIN
     Dosage: UNK
     Route: 065
  5. ONDANSETRON [Suspect]
     Active Substance: ONDANSETRON
     Indication: ABDOMINAL PAIN
     Dosage: UNK
     Route: 065
     Dates: start: 202008, end: 2020
  6. XYLOCAINE PLAIN [Concomitant]
     Active Substance: LIDOCAINE HYDROCHLORIDE
     Indication: ABDOMINAL PAIN
     Dosage: UNK
     Route: 065
     Dates: start: 202008
  7. DEXAMETHASONE. [Concomitant]
     Active Substance: DEXAMETHASONE
     Indication: ABDOMINAL PAIN
     Dosage: UNK
     Route: 065
     Dates: start: 202008

REACTIONS (4)
  - Stevens-Johnson syndrome [Fatal]
  - Pneumonia mycoplasmal [Fatal]
  - Hepatic failure [Fatal]
  - Sepsis [Fatal]

NARRATIVE: CASE EVENT DATE: 2020
